FAERS Safety Report 18824347 (Version 11)
Quarter: 2025Q1

REPORT INFORMATION
  Report Type: Report from Study
  Country: CA (occurrence: CA)
  Receive Date: 20210202
  Receipt Date: 20250314
  Transmission Date: 20250409
  Serious: Yes (Hospitalization, Other)
  Sender: TAKEDA
  Company Number: CA-TAKEDA-CA202025157

PATIENT
  Age: 67 Year
  Sex: Female

DRUGS (7)
  1. HUMAN IMMUNOGLOBULIN G [Suspect]
     Active Substance: HUMAN IMMUNOGLOBULIN G
     Indication: Primary immunodeficiency syndrome
     Dosage: 12 GRAM, 1/WEEK
     Dates: start: 20180723
  2. HUMAN IMMUNOGLOBULIN G [Suspect]
     Active Substance: HUMAN IMMUNOGLOBULIN G
     Dosage: 12 GRAM, 1/WEEK
     Dates: start: 20180723
  3. HUMAN IMMUNOGLOBULIN G [Suspect]
     Active Substance: HUMAN IMMUNOGLOBULIN G
     Dosage: 14 GRAM, 1/WEEK
     Dates: start: 20180723
  4. HUMAN IMMUNOGLOBULIN G [Suspect]
     Active Substance: HUMAN IMMUNOGLOBULIN G
     Dosage: 14 GRAM, 1/WEEK
  5. HUMAN IMMUNOGLOBULIN G [Suspect]
     Active Substance: HUMAN IMMUNOGLOBULIN G
     Dosage: 14 GRAM, 1/WEEK
  6. FLUTICASONE FUROATE [Concomitant]
     Active Substance: FLUTICASONE FUROATE
  7. ADVAIR HFA [Concomitant]
     Active Substance: FLUTICASONE PROPIONATE\SALMETEROL XINAFOATE

REACTIONS (18)
  - Pneumonia [Not Recovered/Not Resolved]
  - Oral candidiasis [Recovering/Resolving]
  - Cataract [Unknown]
  - Nasopharyngitis [Unknown]
  - Illness [Unknown]
  - Poor venous access [Recovered/Resolved]
  - Productive cough [Unknown]
  - Wrong technique in product usage process [Recovered/Resolved]
  - Wrong technique in device usage process [Not Recovered/Not Resolved]
  - Inappropriate schedule of product administration [Recovered/Resolved]
  - Product use complaint [Unknown]
  - Infusion site erythema [Not Recovered/Not Resolved]
  - Sinusitis [Not Recovered/Not Resolved]
  - Infusion site swelling [Recovered/Resolved]
  - Fatigue [Recovered/Resolved]
  - Infusion site pruritus [Recovered/Resolved]
  - Infusion site pain [Unknown]
  - Infusion site induration [Unknown]

NARRATIVE: CASE EVENT DATE: 20210101
